FAERS Safety Report 24166229 (Version 1)
Quarter: 2024Q3

REPORT INFORMATION
  Report Type: Spontaneous
  Country: MX (occurrence: MX)
  Receive Date: 20240802
  Receipt Date: 20240802
  Transmission Date: 20241017
  Serious: Yes (Life-Threatening, Hospitalization)
  Sender: BAUSCH AND LOMB
  Company Number: MX-MLMSERVICE-20240719-PI137411-00120-1

PATIENT
  Age: 51 Year
  Sex: Male

DRUGS (1)
  1. DICLOFENAC [Suspect]
     Active Substance: DICLOFENAC
     Indication: Product used for unknown indication
     Route: 048

REACTIONS (2)
  - Road traffic accident [Unknown]
  - Anaphylactic reaction [Recovered/Resolved]
